FAERS Safety Report 9772982 (Version 2)
Quarter: 2014Q1

REPORT INFORMATION
  Report Type: Spontaneous
  Country: JP (occurrence: None)
  Receive Date: 20131217
  Receipt Date: 20140314
  Transmission Date: 20141002
  Serious: Yes (Other)
  Sender: FDA-Public Use
  Company Number: JP-20130110

PATIENT
  Age: 41 Year
  Sex: Female

DRUGS (2)
  1. LIPIODOL [Suspect]
     Indication: HYSTEROSALPINGOGRAM
     Dosage: 10 ML (10 MG, 1 IN 1 D), I.U.
     Dates: start: 20060601, end: 20060601
  2. PROPOFOL (PROPOFOL) (PROPOFOL) [Concomitant]

REACTIONS (4)
  - Anti-thyroid antibody positive [None]
  - Autoimmune thyroiditis [None]
  - Malaise [None]
  - Generalised oedema [None]
